FAERS Safety Report 23831041 (Version 1)
Quarter: 2024Q2

REPORT INFORMATION
  Report Type: Spontaneous
  Country: CN (occurrence: CN)
  Receive Date: 20240508
  Receipt Date: 20240508
  Transmission Date: 20240716
  Serious: Yes (Other)
  Sender: FDA-Public Use
  Company Number: CN-PFIZER INC-PV202400059063

PATIENT
  Age: 28 Year
  Sex: Male
  Weight: 62 kg

DRUGS (1)
  1. FLUCONAZOLE [Suspect]
     Active Substance: FLUCONAZOLE
     Indication: Gastrointestinal fungal infection
     Dosage: 0.2 G, 1X/DAY
     Route: 041
     Dates: start: 20240420, end: 20240422

REACTIONS (6)
  - Blister [Unknown]
  - Erythema [Unknown]
  - Swelling [Unknown]
  - Papule [Unknown]
  - Rash [Recovering/Resolving]
  - Pruritus [Unknown]

NARRATIVE: CASE EVENT DATE: 20240421
